FAERS Safety Report 15491003 (Version 1)
Quarter: 2018Q4

REPORT INFORMATION
  Report Type: Spontaneous
  Country: IT (occurrence: IT)
  Receive Date: 20181012
  Receipt Date: 20181012
  Transmission Date: 20190205
  Serious: Yes (Hospitalization)
  Sender: FDA-Public Use
  Company Number: IT-AUROBINDO-AUR-APL-2018-049694

PATIENT
  Age: 80 Year
  Sex: Male

DRUGS (3)
  1. LEVOFLOXACIN. [Suspect]
     Active Substance: LEVOFLOXACIN
     Indication: OFF LABEL USE
     Dosage: 1500 MG, QD
     Route: 065
     Dates: start: 201704, end: 2017
  2. BECLOMETASONE [Concomitant]
     Active Substance: BECLOMETHASONE DIPROPIONATE
     Indication: OFF LABEL USE
     Dosage: 168 ?G, QD
     Route: 055
     Dates: start: 201704, end: 2017
  3. BECLOMETASONE [Concomitant]
     Active Substance: BECLOMETHASONE DIPROPIONATE
     Indication: CHRONIC OBSTRUCTIVE PULMONARY DISEASE

REACTIONS (4)
  - Off label use [Recovered/Resolved]
  - Overdose [Recovered/Resolved]
  - Ballismus [Recovered/Resolved]
  - Chorea [Recovered/Resolved]

NARRATIVE: CASE EVENT DATE: 2017
